FAERS Safety Report 7543613-0 (Version None)
Quarter: 2011Q2

REPORT INFORMATION
  Report Type: 
  Country: None (occurrence: None)
  Receive Date: 20110613
  Receipt Date: 20021216
  Transmission Date: 20111010
  Serious: Yes (Life-Threatening, Other)
  Sender: FDA-Public Use
  Company Number: PHFR2002GB03742

PATIENT
  Sex: Female

DRUGS (1)
  1. CLOZAPINE [Suspect]
     Indication: SCHIZOPHRENIA
     Route: 048
     Dates: start: 19940429, end: 20021108

REACTIONS (5)
  - VOMITING [None]
  - ASTHENIA [None]
  - INCONTINENCE [None]
  - ABSCESS [None]
  - CEREBROVASCULAR ACCIDENT [None]
